FAERS Safety Report 16392929 (Version 1)
Quarter: 2019Q2

REPORT INFORMATION
  Report Type: Report from Study
  Country: US (occurrence: US)
  Receive Date: 20190605
  Receipt Date: 20190605
  Transmission Date: 20190711
  Serious: Yes (Other)
  Sender: FDA-Public Use
  Company Number: US-EMD SERONO-9094870

PATIENT
  Age: 70 Year
  Sex: Female

DRUGS (1)
  1. REBIF [Suspect]
     Active Substance: INTERFERON BETA-1A
     Indication: MULTIPLE SCLEROSIS
     Route: 058
     Dates: start: 20051006

REACTIONS (5)
  - Feeling cold [Unknown]
  - Shoulder operation [Unknown]
  - Chills [Unknown]
  - Sleep disorder [Unknown]
  - Night sweats [Unknown]

NARRATIVE: CASE EVENT DATE: 201904
